FAERS Safety Report 9877243 (Version 1)
Quarter: 2014Q1

REPORT INFORMATION
  Report Type: Spontaneous
  Country: US (occurrence: US)
  Receive Date: 20140206
  Receipt Date: 20140206
  Transmission Date: 20141002
  Serious: No
  Sender: FDA-Public Use
  Company Number: US-BAYER-2014-019184

PATIENT
  Age: 79 Year
  Sex: Male
  Weight: 59.86 kg

DRUGS (2)
  1. ALEVE TABLET [Suspect]
     Indication: BACK PAIN
     Dosage: 1-2 DF, PRN (2 IN THE MORNING AND 1 AT NIGHT ON 3-FEB-2014)
     Route: 048
     Dates: start: 20140203
  2. ALEVE TABLET [Suspect]
     Indication: BACK PAIN

REACTIONS (1)
  - Drug ineffective [None]
